FAERS Safety Report 13316091 (Version 1)
Quarter: 2017Q1

REPORT INFORMATION
  Report Type: Spontaneous
  Country: FR (occurrence: FR)
  Receive Date: 20170310
  Receipt Date: 20170310
  Transmission Date: 20170428
  Serious: Yes (Other)
  Sender: FDA-Public Use
  Company Number: FR-009507513-1703FRA000640

PATIENT

DRUGS (1)
  1. RIBAVIRIN. [Suspect]
     Active Substance: RIBAVIRIN
     Indication: RESPIRATORY TRACT INFECTION VIRAL
     Dosage: UNK, TID
     Route: 048

REACTIONS (3)
  - Hepatocellular injury [Unknown]
  - Off label use [Unknown]
  - Cholestasis [Unknown]
